FAERS Safety Report 19004778 (Version 2)
Quarter: 2021Q2

REPORT INFORMATION
  Report Type: Report from Study
  Country: US (occurrence: US)
  Receive Date: 20210312
  Receipt Date: 20210422
  Transmission Date: 20210717
  Serious: Yes (Other)
  Sender: FDA-Public Use
  Company Number: US-SHIRE-US202030730

PATIENT
  Sex: Female

DRUGS (1)
  1. HUMAN NORMAL IMMUNOGLOBULIN; LIQUID [Suspect]
     Active Substance: HUMAN IMMUNOGLOBULIN G
     Indication: PRIMARY IMMUNODEFICIENCY SYNDROME
     Route: 042

REACTIONS (7)
  - Skin weeping [Unknown]
  - Bronchitis [Unknown]
  - Sinusitis [Unknown]
  - Acarodermatitis [Unknown]
  - Eye disorder [Unknown]
  - Rash [Unknown]
  - Diabetes mellitus [Unknown]
